FAERS Safety Report 9024600 (Version 1)
Quarter: 2013Q1

REPORT INFORMATION
  Report Type: Spontaneous
  Country: DK (occurrence: None)
  Receive Date: 20130103
  Receipt Date: 20130103
  Transmission Date: 20140127
  Serious: Yes (Hospitalization)
  Sender: FDA-Public Use
  Company Number: 2012MA014318

PATIENT
  Age: 85 Year
  Sex: Male

DRUGS (3)
  1. DONEPEZIL [Suspect]
     Indication: DEMENTIA
     Route: 048
     Dates: start: 201110, end: 20120817
  2. SIMVASTATIN [Concomitant]
  3. OXYBUTYNIN [Concomitant]

REACTIONS (1)
  - Bradycardia [None]
